FAERS Safety Report 15173171 (Version 2)
Quarter: 2019Q2

REPORT INFORMATION
  Report Type: Spontaneous
  Country: DE (occurrence: DE)
  Receive Date: 20180720
  Receipt Date: 20190516
  Transmission Date: 20190711
  Serious: Yes (Hospitalization, Other)
  Sender: FDA-Public Use
  Company Number: PHHY2015DE178029

PATIENT
  Age: 70 Year
  Sex: Female
  Weight: 50 kg

DRUGS (38)
  1. OXALIPLATIN. [Suspect]
     Active Substance: OXALIPLATIN
     Indication: COLORECTAL CANCER
     Dosage: 135.15 MG, BIW
     Route: 042
     Dates: start: 20160314
  2. FLUOROURACIL. [Suspect]
     Active Substance: FLUOROURACIL
     Indication: COLON CANCER METASTATIC
     Dosage: 2616 MG, BIW
     Route: 041
     Dates: start: 20151123, end: 20151125
  3. FLUOROURACIL. [Suspect]
     Active Substance: FLUOROURACIL
     Dosage: 436 MG, BIW
     Route: 040
     Dates: start: 20151123, end: 20151123
  4. IRINOTECAN [Suspect]
     Active Substance: IRINOTECAN
     Indication: COLON CANCER METASTATIC
     Dosage: 196.2 MG, UNK
     Route: 042
     Dates: start: 20151123, end: 20151123
  5. FOLINIC ACID [Concomitant]
     Active Substance: LEUCOVORIN
     Indication: COLON CANCER METASTATIC
     Dosage: 436 MG, BIW
     Route: 042
     Dates: start: 20151123, end: 20151123
  6. FOLINIC ACID [Concomitant]
     Active Substance: LEUCOVORIN
     Dosage: 636 MG, BIW
     Route: 042
     Dates: start: 20151207
  7. FOLINIC ACID [Concomitant]
     Active Substance: LEUCOVORIN
     Dosage: 636 MG, BIW
     Route: 042
     Dates: start: 20160329
  8. OMEPRAZOLE. [Concomitant]
     Active Substance: OMEPRAZOLE
     Indication: VOMITING
     Dosage: 80 MG, QD
     Route: 048
     Dates: start: 20160330
  9. ZOMETA [Concomitant]
     Active Substance: ZOLEDRONIC ACID
     Indication: METASTASES TO BONE
     Dosage: 4 MG, QID
     Route: 042
     Dates: start: 20151123
  10. CLEXANE [Concomitant]
     Active Substance: ENOXAPARIN SODIUM
     Indication: THROMBOSIS PROPHYLAXIS
     Dosage: 40 MG, QD
     Route: 058
     Dates: start: 20151026, end: 20151204
  11. CEFUROXIM [Concomitant]
     Active Substance: CEFUROXIME
     Dosage: 500 MG, QD
     Route: 048
     Dates: start: 20151202
  12. CLEXANE [Concomitant]
     Active Substance: ENOXAPARIN SODIUM
     Dosage: 40 MG, QD
     Route: 058
     Dates: start: 20160419
  13. OMEPRAZOLE. [Concomitant]
     Active Substance: OMEPRAZOLE
     Dosage: 80 MG, QD
     Route: 048
     Dates: start: 20160418
  14. KALINOR [Concomitant]
     Indication: HYPOKALAEMIA
     Dosage: 40 MMOL, QD
     Route: 048
     Dates: start: 20151207, end: 20151207
  15. IRINOTECAN [Suspect]
     Active Substance: IRINOTECAN
     Dosage: 214.65 MG, UNK
     Route: 042
     Dates: start: 20151207
  16. NIFEDIPIN [Concomitant]
     Active Substance: NIFEDIPINE
     Indication: HYPERTENSION
     Dosage: 10 MG, QD
     Route: 048
     Dates: start: 20151221, end: 20151221
  17. ASPIRIN. [Concomitant]
     Active Substance: ASPIRIN
     Indication: CEREBROVASCULAR ACCIDENT PROPHYLAXIS
     Dosage: 100 MG, QD
     Route: 048
     Dates: start: 20151123
  18. FLUOROURACIL. [Suspect]
     Active Substance: FLUOROURACIL
     Dosage: 477 MG, BIW
     Route: 040
     Dates: start: 20151207, end: 20160229
  19. ONDANSETRON [Concomitant]
     Active Substance: ONDANSETRON
     Indication: NAUSEA
     Dosage: 8 MG, BIW (PER CYCLE)
     Route: 042
     Dates: start: 20151123, end: 20151123
  20. CEFUROXIM [Concomitant]
     Active Substance: CEFUROXIME
     Indication: PRODUCT USED FOR UNKNOWN INDICATION
     Dosage: 500 MG, QD
     Route: 048
     Dates: start: 20151127
  21. OXALIPLATIN. [Suspect]
     Active Substance: OXALIPLATIN
     Dosage: 135.15 MG, BIW
     Route: 042
     Dates: start: 20160329
  22. BEVACIZUMAB. [Suspect]
     Active Substance: BEVACIZUMAB
     Indication: COLON CANCER METASTATIC
     Dosage: 850 MG, BIW
     Route: 042
     Dates: start: 20151123, end: 20160329
  23. BEVACIZUMAB. [Suspect]
     Active Substance: BEVACIZUMAB
     Dosage: 255 MG, BIW
     Route: 042
     Dates: start: 20151221
  24. OMEPRAZOLE. [Concomitant]
     Active Substance: OMEPRAZOLE
     Dosage: 40 MG, QD
     Route: 048
     Dates: start: 20160418
  25. DEXAMETHASONE. [Concomitant]
     Active Substance: DEXAMETHASONE
     Indication: VOMITING
     Dosage: UNK
     Route: 065
  26. CLEXANE [Concomitant]
     Active Substance: ENOXAPARIN SODIUM
     Dosage: 40 MG, QD
     Route: 058
     Dates: start: 20160331
  27. BEVACIZUMAB. [Suspect]
     Active Substance: BEVACIZUMAB
     Dosage: 255 MG, UNK
     Route: 042
     Dates: start: 20160201
  28. NOVALGIN (METAMIZOLE SODIUM) [Concomitant]
     Active Substance: METAMIZOLE SODIUM
     Indication: PAIN
     Dosage: 30 GTT, QD (DROPS)
     Route: 048
     Dates: start: 20151026, end: 20151207
  29. OMEPRAZOLE. [Concomitant]
     Active Substance: OMEPRAZOLE
     Indication: GASTRITIS
     Dosage: 40 MG, QD
     Route: 048
     Dates: start: 20151026, end: 20160330
  30. DEXAMETHASONE. [Concomitant]
     Active Substance: DEXAMETHASONE
     Indication: NAUSEA
     Dosage: 8 MG, BIW (PER CYCLE)
     Route: 042
     Dates: start: 20151123
  31. MACROGOL [Concomitant]
     Active Substance: POLYETHYLENE GLYCOLS
     Indication: FAECES HARD
     Dosage: 13 G, UNK
     Route: 048
  32. FLUOROURACIL. [Suspect]
     Active Substance: FLUOROURACIL
     Dosage: 2862 MG, BIW
     Route: 041
     Dates: start: 20151207
  33. FLUOROURACIL. [Suspect]
     Active Substance: FLUOROURACIL
     Dosage: 1908 MG, UNK
     Route: 042
  34. IRINOTECAN [Suspect]
     Active Substance: IRINOTECAN
     Dosage: 214.65 MG, UNK
     Route: 042
     Dates: start: 20160229
  35. BEVACIZUMAB. [Suspect]
     Active Substance: BEVACIZUMAB
     Dosage: 5 MG/KG, BIW
     Route: 042
     Dates: start: 201512
  36. MCP [Concomitant]
     Active Substance: METOCLOPRAMIDE HYDROCHLORIDE
     Indication: NAUSEA
     Dosage: 30 MG, UNK
     Route: 042
     Dates: start: 20151124, end: 20151127
  37. MCP [Concomitant]
     Active Substance: METOCLOPRAMIDE HYDROCHLORIDE
     Indication: VOMITING
     Dosage: 10 MG, UNK
     Route: 042
  38. MCP [Concomitant]
     Active Substance: METOCLOPRAMIDE HYDROCHLORIDE
     Dosage: 10 MG, UNK (AS REQUIRED)
     Route: 048

REACTIONS (13)
  - Cardiac failure [Recovering/Resolving]
  - Vomiting [Recovered/Resolved]
  - Vomiting [Unknown]
  - Pneumonia [Recovered/Resolved]
  - Hypertension [Recovered/Resolved]
  - Stress cardiomyopathy [Recovering/Resolving]
  - Urosepsis [Recovered/Resolved]
  - Overdose [Unknown]
  - Nausea [Recovered/Resolved]
  - General physical health deterioration [Unknown]
  - Nausea [Unknown]
  - Pyrexia [Unknown]
  - Febrile infection [Recovering/Resolving]

NARRATIVE: CASE EVENT DATE: 20151123
